FAERS Safety Report 10852258 (Version 2)
Quarter: 2017Q1

REPORT INFORMATION
  Report Type: Spontaneous
  Country: US (occurrence: US)
  Receive Date: 20150222
  Receipt Date: 20170209
  Transmission Date: 20170428
  Serious: No
  Sender: FDA-Public Use
  Company Number: US-ALLERGAN-1424982US

PATIENT
  Age: 64 Year
  Sex: Female
  Weight: 72.56 kg

DRUGS (5)
  1. BOTOX [Suspect]
     Active Substance: ONABOTULINUMTOXINA
     Dosage: UNK, UNK, SINGLE
     Dates: start: 20141002, end: 20141002
  2. BOTOX [Suspect]
     Active Substance: ONABOTULINUMTOXINA
     Indication: NERVOUS SYSTEM DISORDER
     Dosage: UNK UNK, SINGLE
     Dates: start: 20141123, end: 20141123
  3. VALSARTAN. [Concomitant]
     Active Substance: VALSARTAN
     Indication: HYPERTENSION
     Dosage: UNK
     Route: 048
  4. EVISTA [Concomitant]
     Active Substance: RALOXIFENE HYDROCHLORIDE
     Indication: BONE DISORDER
     Dosage: UNK
     Route: 048
  5. NORFLEX [Concomitant]
     Active Substance: ORPHENADRINE CITRATE
     Indication: PRODUCT USED FOR UNKNOWN INDICATION
     Dosage: UNK
     Route: 048

REACTIONS (13)
  - Off label use [Unknown]
  - Muscle spasticity [Recovered/Resolved]
  - Burning sensation [Recovered/Resolved]
  - Pain in extremity [Recovered/Resolved]
  - Musculoskeletal stiffness [Recovered/Resolved]
  - Asthenia [Recovered/Resolved]
  - Drug ineffective [Unknown]
  - Excessive eye blinking [Recovered/Resolved]
  - Gait disturbance [Recovered/Resolved]
  - Fatigue [Recovered/Resolved]
  - Balance disorder [Recovered/Resolved]
  - Joint swelling [Recovered/Resolved]
  - Activities of daily living impaired [Recovered/Resolved]

NARRATIVE: CASE EVENT DATE: 20141124
